FAERS Safety Report 9224459 (Version 2)
Quarter: 2013Q3

REPORT INFORMATION
  Report Type: Spontaneous
  Country: US (occurrence: None)
  Receive Date: 20120914
  Receipt Date: 20130916
  Transmission Date: 20140515
  Serious: Yes (Hospitalization, Other)
  Sender: FDA-Public Use
  Company Number: JPI-P-022414

PATIENT
  Age: 39 Year
  Sex: Female

DRUGS (4)
  1. XYREM [Suspect]
     Indication: PRODUCT USED FOR UNKNOWN INDICATION
     Route: 048
  2. FLUOXETINE [Concomitant]
  3. METHYLPHENIDATE [Concomitant]
  4. DOXYCYCLINE [Concomitant]

REACTIONS (15)
  - Suicidal ideation [None]
  - Hypohidrosis [None]
  - Hangover [None]
  - Enuresis [None]
  - Initial insomnia [None]
  - Depression [None]
  - Malaise [None]
  - Feeling drunk [None]
  - Paraesthesia [None]
  - Dizziness [None]
  - Fatigue [None]
  - Confusional state [None]
  - Drug ineffective [None]
  - Middle insomnia [None]
  - Feeling abnormal [None]
